FAERS Safety Report 7441594-1 (Version None)
Quarter: 2011Q2

REPORT INFORMATION
  Report Type: 
  Country: None (occurrence: None)
  Receive Date: 20110428
  Receipt Date: 20110422
  Transmission Date: 20111010
  Serious: Yes (Other)
  Sender: FDA-Public Use
  Company Number: US-PFIZER INC-2011088033

PATIENT
  Sex: Female

DRUGS (2)
  1. AZITHROMYCIN [Suspect]
     Indication: PNEUMONIA
     Dosage: 250 MG, DAILY
     Route: 048
     Dates: start: 20110419
  2. AZITHROMYCIN [Suspect]
     Indication: LOWER RESPIRATORY TRACT INFECTION

REACTIONS (3)
  - AGEUSIA [None]
  - EAR DISCOMFORT [None]
  - ANOSMIA [None]
